FAERS Safety Report 6300364-8 (Version None)
Quarter: 2009Q3

REPORT INFORMATION
  Report Type: 
  Country: None (occurrence: None)
  Receive Date: 20090806
  Receipt Date: 20080811
  Transmission Date: 20100115
  Serious: No
  Sender: FDA-Public Use
  Company Number: US-ABBOTT-08P-163-0470489-00

PATIENT
  Sex: Male

DRUGS (2)
  1. DEPAKOTE ER [Suspect]
     Indication: BIPOLAR DISORDER
     Route: 048
     Dates: start: 20080730
  2. ANTIDEPRESSANT [Concomitant]
     Indication: DEPRESSION
     Route: 048

REACTIONS (4)
  - ANGER [None]
  - INSOMNIA [None]
  - MANIA [None]
  - UNEVALUABLE EVENT [None]
